FAERS Safety Report 5583768-0 (Version None)
Quarter: 2008Q1

REPORT INFORMATION
  Report Type: 
  Country: None (occurrence: None)
  Receive Date: 20080108
  Receipt Date: 20080103
  Transmission Date: 20080703
  Serious: Yes (Other)
  Sender: FDA-Public Use
  Company Number: US-JNJFOC-20071107781

PATIENT
  Sex: Female
  Weight: 58.51 kg

DRUGS (2)
  1. REMICADE [Suspect]
     Dosage: DOSE: 3 VIALS
     Route: 042
  2. REMICADE [Suspect]
     Indication: DRUG USE FOR UNKNOWN INDICATION
     Dosage: DOSE: 3 VIALS
     Route: 042

REACTIONS (1)
  - NEOPLASM MALIGNANT [None]
